FAERS Safety Report 14646896 (Version 1)
Quarter: 2018Q1

REPORT INFORMATION
  Report Type: Spontaneous
  Country: FR (occurrence: FR)
  Receive Date: 20180316
  Receipt Date: 20180316
  Transmission Date: 20180509
  Serious: Yes (Hospitalization)
  Sender: FDA-Public Use
  Company Number: FR-MERCK KGAA-2043900

PATIENT
  Age: 21 Year
  Sex: Female

DRUGS (1)
  1. NOVOTHYROX [Suspect]
     Active Substance: LEVOTHYROXINE SODIUM
     Indication: PRODUCT USED FOR UNKNOWN INDICATION

REACTIONS (18)
  - Mental fatigue [None]
  - Mood swings [None]
  - Alopecia [None]
  - Palpitations [None]
  - Amnesia [None]
  - Disturbance in attention [None]
  - Listless [None]
  - Anti-thyroid antibody positive [None]
  - Thyroxine free increased [None]
  - Blood thyroid stimulating hormone decreased [None]
  - Tachycardia [None]
  - Myalgia [None]
  - Fatigue [None]
  - Tri-iodothyronine free increased [None]
  - Constipation [None]
  - Partner stress [None]
  - Headache [None]
  - Hot flush [None]

NARRATIVE: CASE EVENT DATE: 201707
